FAERS Safety Report 18993196 (Version 1)
Quarter: 2021Q1

REPORT INFORMATION
  Report Type: Spontaneous
  Country: JP (occurrence: JP)
  Receive Date: 20210310
  Receipt Date: 20210310
  Transmission Date: 20210420
  Serious: Yes (Other)
  Sender: FDA-Public Use
  Company Number: JP-ALLERGAN-2110157US

PATIENT
  Sex: Male

DRUGS (1)
  1. MEMANTINE HCL ? BP [Suspect]
     Active Substance: MEMANTINE
     Indication: MEMORY IMPAIRMENT
     Dosage: 5 MG, QD
     Route: 048

REACTIONS (6)
  - Cerebral atrophy [Not Recovered/Not Resolved]
  - Off label use [Unknown]
  - Urinary incontinence [Not Recovered/Not Resolved]
  - Poriomania [Not Recovered/Not Resolved]
  - Verbal abuse [Not Recovered/Not Resolved]
  - Dementia Alzheimer^s type [Not Recovered/Not Resolved]

NARRATIVE: CASE EVENT DATE: 202102
